FAERS Safety Report 18333478 (Version 1)
Quarter: 2020Q4

REPORT INFORMATION
  Report Type: Report from Study
  Country: IT (occurrence: IT)
  Receive Date: 20201001
  Receipt Date: 20201001
  Transmission Date: 20210113
  Serious: Yes (Hospitalization)
  Sender: FDA-Public Use
  Company Number: IT-ACCORD-203604

PATIENT
  Age: 84 Year
  Sex: Male

DRUGS (11)
  1. TORVAST [Concomitant]
     Active Substance: ATORVASTATIN
  2. LASIX [Concomitant]
     Active Substance: FUROSEMIDE
  3. TOUJEO [Concomitant]
     Active Substance: INSULIN GLARGINE
  4. ESOMEPRAZOLE/ESOMEPRAZOLE MAGNESIUM/ESOMEPRAZOLE SODIUM [Concomitant]
     Active Substance: ESOMEPRAZOLE
  5. INSULIN LISPRO/INSULIN LISPRO PROTAMINE SUSPE [Concomitant]
     Active Substance: INSULIN LISPRO
  6. CARDURA [Concomitant]
     Active Substance: DOXAZOSIN MESYLATE
  7. GANFORT [Concomitant]
     Active Substance: BIMATOPROST\TIMOLOL
  8. CLOPIDOGREL [Suspect]
     Active Substance: CLOPIDOGREL BISULFATE
     Indication: PRODUCT USED FOR UNKNOWN INDICATION
     Dates: start: 20200101, end: 20200616
  9. NORVASC [Concomitant]
     Active Substance: AMLODIPINE BESYLATE
  10. METOPROLOL. [Concomitant]
     Active Substance: METOPROLOL
  11. CARDIOASPIRIN [Suspect]
     Active Substance: ASPIRIN
     Indication: PRODUCT USED FOR UNKNOWN INDICATION
     Dates: start: 20200101, end: 20200616

REACTIONS (1)
  - Anaemia [Not Recovered/Not Resolved]

NARRATIVE: CASE EVENT DATE: 20200616
